FAERS Safety Report 4698530-0 (Version None)
Quarter: 2005Q2

REPORT INFORMATION
  Report Type: 
  Country: None (occurrence: None)
  Receive Date: 20050622
  Receipt Date: 20050609
  Transmission Date: 20051028
  Serious: Yes (Death, Other)
  Sender: FDA-Public Use
  Company Number: 2005087492

PATIENT
  Sex: Male
  Weight: 65.7716 kg

DRUGS (2)
  1. CELEBREX [Suspect]
     Indication: RHEUMATOID ARTHRITIS
     Dosage: 400 MG (200 MG, 2 IN 1 D) ORAL
     Route: 048
     Dates: end: 20030901
  2. ALL OTHER THERAPEUTIC PRODUCTS [Concomitant]

REACTIONS (3)
  - HYPERTENSION [None]
  - KNEE OPERATION [None]
  - MYOCARDIAL INFARCTION [None]
